FAERS Safety Report 13888130 (Version 1)
Quarter: 2017Q3

REPORT INFORMATION
  Report Type: Spontaneous
  Country: KR (occurrence: KR)
  Receive Date: 20170821
  Receipt Date: 20170821
  Transmission Date: 20171127
  Serious: Yes (Hospitalization, Other)
  Sender: FDA-Public Use
  Company Number: KR-MYLANLABS-2017M1051421

PATIENT

DRUGS (7)
  1. TRIAMCINOLONE [Suspect]
     Active Substance: TRIAMCINOLONE
     Indication: BACK PAIN
     Dosage: 20MG
     Route: 008
  2. BUPIVACAINE. [Suspect]
     Active Substance: BUPIVACAINE
     Indication: SCIATICA
     Dosage: 4ML, 0.25%
     Route: 008
  3. SODIUM CHLORIDE. [Concomitant]
     Active Substance: SODIUM CHLORIDE
     Indication: PRODUCT USED FOR UNKNOWN INDICATION
     Dosage: 8.5ML
     Route: 008
  4. HYALURONIDASE [Concomitant]
     Active Substance: HYALURONIDASE
     Indication: BACK PAIN
     Dosage: 2ML
     Route: 008
  5. BUPIVACAINE. [Suspect]
     Active Substance: BUPIVACAINE
     Indication: BACK PAIN
     Dosage: 4ML, 0.25%
     Route: 008
  6. TRIAMCINOLONE [Suspect]
     Active Substance: TRIAMCINOLONE
     Indication: SCIATICA
     Dosage: 20MG
     Route: 008
  7. HYALURONIDASE [Concomitant]
     Active Substance: HYALURONIDASE
     Indication: SCIATICA
     Dosage: 2ML
     Route: 008

REACTIONS (2)
  - Cauda equina syndrome [Recovering/Resolving]
  - Paraplegia [Recovering/Resolving]
